FAERS Safety Report 7928112-6 (Version None)
Quarter: 2011Q4

REPORT INFORMATION
  Report Type: 
  Country: None (occurrence: None)
  Receive Date: 20111118
  Receipt Date: 20111109
  Transmission Date: 20120403
  Serious: Yes (Other)
  Sender: FDA-Public Use
  Company Number: US-BAYER-2011-060265

PATIENT
  Age: 23 Year
  Sex: Female
  Weight: 68 kg

DRUGS (9)
  1. DROSPIRENONE AND ETHINYL ESTRADIOL [Suspect]
     Indication: MENSTRUATION IRREGULAR
  2. YASMIN [Suspect]
     Indication: MENSTRUATION IRREGULAR
  3. ATIVAN [Concomitant]
     Indication: ANXIETY
     Dosage: UNK UNK, PRN (AS NEEDED)
     Route: 048
     Dates: start: 20060101, end: 20090101
  4. DROSPIRENONE AND ETHINYL ESTRADIOL [Suspect]
     Indication: CONTRACEPTION
     Dosage: UNK
     Dates: start: 20090301, end: 20090701
  5. ZOLOFT [Concomitant]
     Indication: DEPRESSION
  6. MIRENA [Concomitant]
  7. YASMIN [Suspect]
     Indication: CONTRACEPTION
     Dosage: UNK
     Dates: start: 20060201, end: 20090201
  8. ZOLOFT [Concomitant]
     Indication: ANXIETY
     Dosage: 1 TAB DAILY
     Route: 048
     Dates: start: 20050101, end: 20090101
  9. ADDERALL 5 [Concomitant]
     Dosage: 30 MG, WEEKLY
     Route: 048

REACTIONS (4)
  - CHOLELITHIASIS [None]
  - GALLBLADDER DISORDER [None]
  - CHOLECYSTITIS [None]
  - INJURY [None]
